FAERS Safety Report 19595319 (Version 1)
Quarter: 2021Q3

REPORT INFORMATION
  Report Type: Spontaneous
  Country: IN (occurrence: IN)
  Receive Date: 20210723
  Receipt Date: 20210723
  Transmission Date: 20211014
  Serious: Yes (Other)
  Sender: FDA-Public Use
  Company Number: IN-CIPLA (EU) LIMITED-2021IN04970

PATIENT

DRUGS (4)
  1. ASTHALIN [SALBUTAMOL] [Suspect]
     Active Substance: ALBUTEROL
     Dosage: UNK, 2 TO 3 DOSES PER DAY (NOT SURE)
     Dates: start: 2021
  2. ASTHALIN [SALBUTAMOL] [Suspect]
     Active Substance: ALBUTEROL
     Indication: ASTHMA
     Dosage: UNK, 2 TO 3 DOSES PER DAY (NOT SURE)
     Dates: start: 2021
  3. ASTHALIN [SALBUTAMOL] [Suspect]
     Active Substance: ALBUTEROL
     Dosage: UNK, 2 TO 3 DOSES PER DAY (NOT SURE)
     Dates: start: 2021
  4. ASTHALIN [SALBUTAMOL] [Suspect]
     Active Substance: ALBUTEROL
     Dosage: UNK, 2 TO 3 DOSES PER DAY (NOT SURE)
     Dates: start: 2021

REACTIONS (2)
  - Panic attack [Unknown]
  - Device malfunction [Unknown]

NARRATIVE: CASE EVENT DATE: 2021
